FAERS Safety Report 12362424 (Version 5)
Quarter: 2016Q4

REPORT INFORMATION
  Report Type: Report from Study
  Country: US (occurrence: US)
  Receive Date: 20160512
  Receipt Date: 20161005
  Transmission Date: 20170207
  Serious: Yes (Other)
  Sender: FDA-Public Use
  Company Number: US-BAYER-2016-077782

PATIENT
  Age: 63 Year
  Sex: Female
  Weight: 53.52 kg

DRUGS (25)
  1. NEXAVAR [Suspect]
     Active Substance: SORAFENIB
     Indication: HEPATIC CANCER
     Dosage: 400 MG, BID (TWO TABLETS TWICE DAILY)
     Route: 048
     Dates: start: 201604, end: 20160429
  2. NEXAVAR [Suspect]
     Active Substance: SORAFENIB
     Indication: HEPATIC CANCER
     Dosage: 400 MG, BID
     Route: 048
     Dates: start: 2016, end: 2016
  3. MULTIVITAMINS [Concomitant]
     Active Substance: VITAMINS
  4. LORAZEPAM. [Concomitant]
     Active Substance: LORAZEPAM
  5. NEXAVAR [Suspect]
     Active Substance: SORAFENIB
     Indication: B-CELL LYMPHOMA
     Dosage: 400 MG, BID
     Route: 048
     Dates: start: 2016, end: 2016
  6. VITAMIN B COMPLEX COX [Concomitant]
  7. METHYLPREDNISOLON [Concomitant]
     Active Substance: METHYLPREDNISOLONE
  8. ROSUVASTATIN. [Concomitant]
     Active Substance: ROSUVASTATIN
  9. HYDROCHLOROTHIAZIDE. [Concomitant]
     Active Substance: HYDROCHLOROTHIAZIDE
  10. ALLOPURINOL. [Concomitant]
     Active Substance: ALLOPURINOL
  11. NYSTATIN. [Concomitant]
     Active Substance: NYSTATIN
  12. DOXYCYCLIN AL [DOXYCYCLINE HYCLATE] [Concomitant]
  13. LATANOPROST. [Concomitant]
     Active Substance: LATANOPROST
  14. ZOLPIDEM [Concomitant]
     Active Substance: ZOLPIDEM\ZOLPIDEM TARTRATE
  15. VITAMIN B COMPLEX [Concomitant]
     Active Substance: CYANOCOBALAMIN\DEXPANTHENOL\NIACINAMIDE\PYRIDOXINE HYDROCHLORIDE\RIBOFLAVIN 5^-PHOSPHATE SODIUM\THIAMINE HYDROCHLORIDE\VITAMIN B COMPLEX
  16. DOXYCYCLIN [DOXYCYCLINE] [Concomitant]
  17. ESTRING [Concomitant]
     Active Substance: ESTRADIOL
     Dosage: 0.75 MCG
  18. LOSARTAN. [Concomitant]
     Active Substance: LOSARTAN
  19. MOMETASONE [Concomitant]
     Active Substance: MOMETASONE
  20. CURCUMIN [Concomitant]
     Active Substance: CURCUMIN
  21. CALCITRIOL. [Concomitant]
     Active Substance: CALCITRIOL
  22. PROTEINS NOS [Concomitant]
  23. RESTORIL [Concomitant]
     Active Substance: TEMAZEPAM
  24. ONDANSETRON [Concomitant]
     Active Substance: ONDANSETRON
  25. PRISTIQ EXTENDED-RELEASE [Concomitant]
     Active Substance: DESVENLAFAXINE SUCCINATE

REACTIONS (49)
  - Somnolence [None]
  - Skin reaction [Recovering/Resolving]
  - Skin discolouration [Recovering/Resolving]
  - Acne [Unknown]
  - Hyperkeratosis [Recovering/Resolving]
  - Skin tightness [Not Recovered/Not Resolved]
  - Insomnia [None]
  - Pain in extremity [None]
  - Hyperkeratosis [Unknown]
  - Nausea [None]
  - Weight decreased [None]
  - Pain in extremity [Unknown]
  - Diarrhoea [None]
  - Erythema [None]
  - Rash [Recovering/Resolving]
  - Rash [Unknown]
  - Dizziness [Unknown]
  - Chills [Unknown]
  - Insomnia [Unknown]
  - Diarrhoea [Unknown]
  - Abdominal pain upper [None]
  - Pruritus [Unknown]
  - Hyperkeratosis [None]
  - Rash macular [Unknown]
  - Palmar-plantar erythrodysaesthesia syndrome [Recovering/Resolving]
  - Gait disturbance [None]
  - Chills [None]
  - Ear discomfort [None]
  - Pruritus generalised [Unknown]
  - Constipation [None]
  - Gait disturbance [Recovering/Resolving]
  - Alopecia [Unknown]
  - Activities of daily living impaired [Recovering/Resolving]
  - Nervousness [Unknown]
  - Anxiety [None]
  - Skin reaction [Not Recovered/Not Resolved]
  - Glossodynia [None]
  - Rash generalised [Unknown]
  - Hypoaesthesia [Recovering/Resolving]
  - Flushing [Unknown]
  - Nausea [Unknown]
  - Gastric disorder [Unknown]
  - Urinary retention [None]
  - Chills [Not Recovered/Not Resolved]
  - Blister [Not Recovered/Not Resolved]
  - Palmar-plantar erythrodysaesthesia syndrome [Not Recovered/Not Resolved]
  - Pain [None]
  - Rhinorrhoea [None]
  - Decreased appetite [Unknown]

NARRATIVE: CASE EVENT DATE: 2016
